FAERS Safety Report 8538290 (Version 5)
Quarter: 2014Q4

REPORT INFORMATION
  Report Type: Report from Study
  Country: US (occurrence: US)
  Receive Date: 20120315
  Receipt Date: 20141029
  Transmission Date: 20150529
  Serious: Yes (Other)
  Sender: FDA-Public Use
  Company Number: PHHY2011US19245

PATIENT
  Age: 43 Year
  Sex: Male
  Weight: 68.73 kg

DRUGS (16)
  1. GILENYA [Suspect]
     Active Substance: FINGOLIMOD HYDROCHLORIDE
     Indication: MULTIPLE SCLEROSIS
     Dosage: 0.5 MG, QD
     Route: 048
     Dates: start: 201101
  2. IRON SUCCINYL-PROTEIN COMPLEX [Concomitant]
  3. AMFETAMINE SULFATE W/DEXAMFETAMINE [Concomitant]
  4. VITAMIN D3 [Concomitant]
     Active Substance: CHOLECALCIFEROL
  5. WELLBUTRIN [Concomitant]
     Active Substance: BUPROPION HYDROCHLORIDE
  6. CITALOPRAM [Concomitant]
     Active Substance: CITALOPRAM HYDROBROMIDE
  7. LISINOPRIL. [Concomitant]
     Active Substance: LISINOPRIL
  8. METFORMIN [Concomitant]
     Active Substance: METFORMIN HYDROCHLORIDE
     Dosage: UNK UKN, UNK
  9. ROPINIROLE. [Concomitant]
     Active Substance: ROPINIROLE
  10. ADDERALL [Suspect]
     Active Substance: AMPHETAMINE ASPARTATE\AMPHETAMINE SULFATE\DEXTROAMPHETAMINE SACCHARATE\DEXTROAMPHETAMINE SULFATE
  11. LEXAPRO [Concomitant]
     Active Substance: ESCITALOPRAM OXALATE
     Dosage: UNK UKN, UNK
  12. VIAGRA [Concomitant]
     Active Substance: SILDENAFIL CITRATE
  13. JANUVIA [Concomitant]
     Active Substance: SITAGLIPTIN PHOSPHATE
     Dosage: UNK UKN, UNK
  14. BISOPROLOL [Concomitant]
     Active Substance: BISOPROLOL
     Dosage: UNK UKN, UNK
  15. CALCIUM [Concomitant]
     Active Substance: CALCIUM
  16. CLONAZEPAM. [Concomitant]
     Active Substance: CLONAZEPAM

REACTIONS (13)
  - Malaise [Unknown]
  - Fall [Unknown]
  - Feeling hot [Recovering/Resolving]
  - Muscular weakness [Unknown]
  - Back pain [Recovering/Resolving]
  - Sleep apnoea syndrome [Unknown]
  - Somnolence [Unknown]
  - Vision blurred [Recovering/Resolving]
  - Asthenia [Unknown]
  - Drug ineffective [Unknown]
  - Photophobia [Unknown]
  - Narcolepsy [Unknown]
  - Fatigue [Unknown]

NARRATIVE: CASE EVENT DATE: 20110304
